FAERS Safety Report 5700844-X (Version None)
Quarter: 2008Q2

REPORT INFORMATION
  Report Type: 
  Country: None (occurrence: None)
  Receive Date: 20080410
  Receipt Date: 20080410
  Transmission Date: 20081010
  Serious: Yes (Other)
  Sender: FDA-Public Use
  Company Number: A0722119A

PATIENT
  Age: 23 Year
  Sex: Female
  Weight: 72.7 kg

DRUGS (2)
  1. ALLI [Suspect]
     Indication: WEIGHT LOSS DIET
     Route: 048
     Dates: start: 20080205, end: 20080408
  2. ZOLOFT [Concomitant]

REACTIONS (1)
  - HEPATIC ENZYME INCREASED [None]
